FAERS Safety Report 6185501-0 (Version None)
Quarter: 2009Q2

REPORT INFORMATION
  Report Type: 
  Country: None (occurrence: None)
  Receive Date: 20090511
  Receipt Date: 20090506
  Transmission Date: 20091009
  Serious: Yes (Other)
  Sender: FDA-Public Use
  Company Number: PHHY2009DE10666

PATIENT
  Sex: Male

DRUGS (4)
  1. RASILEZ [Suspect]
     Indication: HYPERTENSION
     Dosage: 150 MG /DAY
     Route: 048
     Dates: start: 20090301, end: 20090319
  2. RASILEZ [Suspect]
     Dosage: 75 MG/DAY
     Route: 048
     Dates: start: 20090320, end: 20090401
  3. TRIAMTERENE AND HYDROCHLOROTHIAZIDE [Concomitant]
     Indication: HYPERTENSION
     Dosage: UNK
     Route: 048
  4. CIBACEN [Concomitant]
     Indication: HYPERTENSION
     Dosage: 0.25 DF, QD
     Route: 048

REACTIONS (4)
  - ARRHYTHMIA [None]
  - CONDITION AGGRAVATED [None]
  - EXTRASYSTOLES [None]
  - TACHYCARDIA [None]
